FAERS Safety Report 18751728 (Version 1)
Quarter: 2021Q1

REPORT INFORMATION
  Report Type: Report from Study
  Country: DE (occurrence: DE)
  Receive Date: 20210118
  Receipt Date: 20210118
  Transmission Date: 20210419
  Serious: Yes (Hospitalization, Other)
  Sender: FDA-Public Use
  Company Number: DE-TAKEDA-2019TUS033524

PATIENT
  Age: 45 Year
  Sex: Female
  Weight: 63 kg

DRUGS (6)
  1. METAMIZOL 1A PHARMA [Concomitant]
     Indication: PAIN
     Dosage: 300 MILLIGRAM, TID
     Dates: start: 201907
  2. METHOTREXATE. [Concomitant]
     Active Substance: METHOTREXATE
     Indication: ARTHRALGIA
     Dosage: 300 MILLIGRAM, 1/WEEK
     Dates: start: 20190525
  3. VEDOLIZUMAB [Suspect]
     Active Substance: VEDOLIZUMAB
     Indication: CROHN^S DISEASE
     Dosage: 300 MILLIGRAM
     Route: 042
     Dates: start: 20190218
  4. METHOTREXATE. [Concomitant]
     Active Substance: METHOTREXATE
     Indication: CROHN^S DISEASE
     Dosage: 15 MILLIGRAM, 1/WEEK
     Dates: start: 201905
  5. METHOTREXATE. [Concomitant]
     Active Substance: METHOTREXATE
     Indication: COLITIS ULCERATIVE
  6. VANCOMYCIN [Concomitant]
     Active Substance: VANCOMYCIN
     Indication: INFECTION
     Dosage: 250 MILLIGRAM, QID
     Dates: start: 20201124, end: 20201207

REACTIONS (3)
  - Clostridium difficile infection [Recovered/Resolved]
  - Ileus [Unknown]
  - Enteritis [Recovered/Resolved]

NARRATIVE: CASE EVENT DATE: 20190528
